FAERS Safety Report 4392506-9 (Version None)
Quarter: 2004Q3

REPORT INFORMATION
  Report Type: 
  Country: None (occurrence: None)
  Receive Date: 20040702
  Receipt Date: 20040625
  Transmission Date: 20050211
  Serious: Yes (Death)
  Sender: FDA-Public Use
  Company Number: RGD: 54756/437

PATIENT
  Age: 3 Month
  Sex: Male

DRUGS (1)
  1. LEVONORGESTREL [Suspect]
     Indication: ABORTION INDUCED
     Dosage: 2 DOSES ORAL
     Route: 048
     Dates: start: 20030210

REACTIONS (2)
  - DRUG EXPOSURE DURING PREGNANCY [None]
  - FOETAL MALFORMATION [None]
